FAERS Safety Report 9317415 (Version 1)
Quarter: 2013Q2

REPORT INFORMATION
  Report Type: Spontaneous
  Country: US (occurrence: US)
  Receive Date: 20130530
  Receipt Date: 20130530
  Transmission Date: 20140414
  Serious: No
  Sender: FDA-Public Use
  Company Number: US-NOVEN-12US004862

PATIENT
  Age: 13 Year
  Sex: Male
  Weight: 27.21 kg

DRUGS (6)
  1. DAYTRANA [Suspect]
     Indication: ATTENTION DEFICIT/HYPERACTIVITY DISORDER
     Dosage: 30 MG, UNK
     Route: 062
     Dates: start: 201205
  2. DAYTRANA [Suspect]
     Dosage: UNK
     Dates: start: 2007
  3. DAYTRANA [Suspect]
     Dosage: 30 MG, UNK
     Route: 062
     Dates: end: 201205
  4. DAYTRANA [Suspect]
     Dosage: 1 X 30MG AND 1 X 10MG
     Dates: start: 201205, end: 201205
  5. INTUNIV [Concomitant]
     Indication: ATTENTION DEFICIT/HYPERACTIVITY DISORDER
     Dosage: 2 MG, UNK
     Route: 048
  6. INTUNIV [Concomitant]
     Dosage: 1 MG, UNK
     Route: 048
     Dates: start: 201206

REACTIONS (5)
  - Disturbance in attention [Not Recovered/Not Resolved]
  - Incorrect drug administration duration [Not Recovered/Not Resolved]
  - Wrong technique in drug usage process [Recovered/Resolved]
  - Drug prescribing error [Recovered/Resolved]
  - Product quality issue [Not Recovered/Not Resolved]
